FAERS Safety Report 18419885 (Version 3)
Quarter: 2022Q2

REPORT INFORMATION
  Report Type: Other
  Country: CH (occurrence: CH)
  Receive Date: 20201023
  Receipt Date: 20220414
  Transmission Date: 20220720
  Serious: Yes (Other)
  Sender: FDA-Public Use
  Company Number: CH-ASTELLAS-2020US036545

PATIENT
  Age: 16 Year
  Sex: Female
  Weight: 48 kg

DRUGS (10)
  1. PROGRAF [Suspect]
     Active Substance: TACROLIMUS
     Indication: Renal transplant
     Dosage: 5 MG/ML, UNKNOWN FREQ.
     Route: 041
     Dates: start: 20200721, end: 20200830
  2. AMOXICILLIN [Concomitant]
     Active Substance: AMOXICILLIN
     Indication: Product used for unknown indication
     Dosage: 500 MG, ONCE DAILY (10.42 MG/KG)
     Route: 048
  3. AMOXICILLIN [Concomitant]
     Active Substance: AMOXICILLIN
     Indication: Product used for unknown indication
     Dosage: 1000 MG, ONCE DAILY (10.42 MG/KG)
     Route: 048
  4. ENALAPRIL [Concomitant]
     Active Substance: ENALAPRIL
     Indication: Product used for unknown indication
     Dosage: 12.5 MG, TWICE DAILY (0.28 MG/KG) (1X 12 H)
     Route: 048
  5. ESOMEPRAZOLE [Concomitant]
     Active Substance: ESOMEPRAZOLE
     Indication: Product used for unknown indication
     Dosage: 40 MG, ONCE DAILY (40 MG (0.82 MG/KG)
     Route: 048
  6. ATARAX [Concomitant]
     Active Substance: HYDROXYZINE HYDROCHLORIDE
     Indication: Product used for unknown indication
     Route: 048
  7. TRANDATE [Concomitant]
     Active Substance: LABETALOL HYDROCHLORIDE
     Indication: Product used for unknown indication
     Dosage: 200 MG, THRICE DAILY (4.17 MG/KG)
     Route: 048
  8. MOXONIDINE [Concomitant]
     Active Substance: MOXONIDINE
     Indication: Product used for unknown indication
     Dosage: 0.2 MG, ONCE DAILY
     Route: 048
  9. CELLCEPT [Concomitant]
     Active Substance: MYCOPHENOLATE MOFETIL
     Indication: Product used for unknown indication
     Dosage: 1000 MG, TWICE DAILY (675.5 MG/M2)
     Route: 048
  10. PREDNISONE [Concomitant]
     Active Substance: PREDNISONE
     Indication: Product used for unknown indication
     Dosage: 10 MG, ONCE DAILY (0.2 MG/KG)
     Route: 048

REACTIONS (11)
  - Vasogenic cerebral oedema [Unknown]
  - Brain oedema [Unknown]
  - Concentric sclerosis [Unknown]
  - Post transplant lymphoproliferative disorder [Unknown]
  - Brain abscess [Unknown]
  - Viral infection [Unknown]
  - Progressive multifocal leukoencephalopathy [Unknown]
  - Toxicity to various agents [Unknown]
  - Immunosuppressant drug level increased [Unknown]
  - Neurological decompensation [Recovering/Resolving]
  - Aphasia [Recovering/Resolving]

NARRATIVE: CASE EVENT DATE: 20200829
